FAERS Safety Report 21664972 (Version 1)
Quarter: 2022Q4

REPORT INFORMATION
  Report Type: Report from Study
  Country: US (occurrence: US)
  Receive Date: 20221130
  Receipt Date: 20221130
  Transmission Date: 20230113
  Serious: No
  Sender: FDA-Public Use
  Company Number: US-ABBVIE-4170313

PATIENT
  Sex: Female

DRUGS (2)
  1. HUMIRA [Suspect]
     Active Substance: ADALIMUMAB
     Indication: Product used for unknown indication
     Route: 058
  2. NASAL FLU VACCINE [Concomitant]
     Indication: Influenza immunisation
     Route: 045

REACTIONS (2)
  - Malaise [Recovering/Resolving]
  - Vomiting [Recovering/Resolving]
